FAERS Safety Report 11816189 (Version 2)
Quarter: 2015Q4

REPORT INFORMATION
  Report Type: Spontaneous
  Country: US (occurrence: US)
  Receive Date: 20151209
  Receipt Date: 20151214
  Transmission Date: 20160305
  Serious: Yes (Life-Threatening, Hospitalization)
  Sender: FDA-Public Use
  Company Number: US-ALLERGAN-1525219US

PATIENT
  Age: 69 Year
  Sex: Male
  Weight: 73.2 kg

DRUGS (2)
  1. DALBAVANCIN HCL UNK [Suspect]
     Active Substance: DALBAVANCIN HYDROCHLORIDE
     Indication: CELLULITIS STAPHYLOCOCCAL
     Dosage: 500 MG, SINGLE
     Route: 042
     Dates: start: 20141016, end: 20141016
  2. DALBAVANCIN HCL UNK [Suspect]
     Active Substance: DALBAVANCIN HYDROCHLORIDE
     Dosage: 1000 MG, SINGLE
     Route: 042
     Dates: start: 20140926, end: 20140926

REACTIONS (2)
  - Hypersensitivity [Unknown]
  - Pyrexia [Unknown]

NARRATIVE: CASE EVENT DATE: 20141027
